FAERS Safety Report 15802383 (Version 1)
Quarter: 2019Q1

REPORT INFORMATION
  Report Type: Report from Study
  Country: None (occurrence: BE)
  Receive Date: 20190109
  Receipt Date: 20190109
  Transmission Date: 20190417
  Serious: Yes (Death)
  Sender: FDA-Public Use
  Company Number: BE-ABBVIE-19S-013-2618253-00

PATIENT
  Sex: Male

DRUGS (3)
  1. DUODOPA [Suspect]
     Active Substance: CARBIDOPA\LEVODOPA
     Dosage: DOSES CONTINUOUSLY MONITORED AND ADAPTED
     Route: 050
     Dates: start: 20090817, end: 20180702
  2. DUODOPA [Suspect]
     Active Substance: CARBIDOPA\LEVODOPA
     Indication: PARKINSON^S DISEASE
     Dosage: MD= 12ML??CD= 4.8ML/HR DURING 16HRS ??ED= 2ML
     Route: 050
     Dates: start: 20080818, end: 20090817
  3. DUODOPA [Suspect]
     Active Substance: CARBIDOPA\LEVODOPA
     Dosage: MD= 6ML??CD= 2.1ML/HR DURING 16HRS ??ED= 0.5ML
     Route: 050
     Dates: start: 20180702

REACTIONS (1)
  - Death [Fatal]
